FAERS Safety Report 4899251-1 (Version None)
Quarter: 2006Q1

REPORT INFORMATION
  Report Type: 
  Country: None (occurrence: None)
  Receive Date: 20060202
  Receipt Date: 20060123
  Transmission Date: 20060701
  Serious: Yes (Hospitalization)
  Sender: FDA-Public Use
  Company Number: AU-ROCHE-433146

PATIENT
  Age: 51 Year
  Sex: Female
  Weight: 71 kg

DRUGS (2)
  1. PEGASYS [Suspect]
     Route: 065
     Dates: start: 20030908
  2. RIBAVIRIN [Suspect]
     Indication: DRUG USE FOR UNKNOWN INDICATION
     Dosage: DAILY.
     Route: 065

REACTIONS (6)
  - ABDOMINAL PAIN [None]
  - DISTURBANCE IN ATTENTION [None]
  - HEADACHE [None]
  - PLEURAL EFFUSION [None]
  - PLEURITIC PAIN [None]
  - VOMITING [None]
